FAERS Safety Report 6304414-4 (Version None)
Quarter: 2009Q3

REPORT INFORMATION
  Report Type: 
  Country: None (occurrence: None)
  Receive Date: 20090811
  Receipt Date: 20090806
  Transmission Date: 20100115
  Serious: Yes (Death, Other)
  Sender: FDA-Public Use
  Company Number: PHEH2009US08316

PATIENT
  Age: 57 Year
  Sex: Female
  Weight: 55.782 kg

DRUGS (3)
  1. CLOZARIL [Suspect]
     Indication: SCHIZOPHRENIA
     Dosage: 25 MG, DAILY X FOUR DAYS
     Route: 048
     Dates: start: 20050201, end: 20050201
  2. CLOZARIL [Suspect]
     Dosage: 100 MG, QD
     Route: 048
     Dates: start: 20050201, end: 20050304
  3. CLOZARIL [Suspect]
     Dosage: 50 MG QAM, 150 MG QPM
     Route: 048
     Dates: start: 20050304, end: 20050309

REACTIONS (9)
  - ANTIPSYCHOTIC DRUG LEVEL ABOVE THERAPEUTIC [None]
  - BLOOD GLUCOSE INCREASED [None]
  - BLOOD KETONE BODY [None]
  - BRONCHOPNEUMONIA [None]
  - DRUG TOXICITY [None]
  - HEPATIC STEATOSIS [None]
  - LUNG CONSOLIDATION [None]
  - PULMONARY CONGESTION [None]
  - PULMONARY OEDEMA [None]
